FAERS Safety Report 11125278 (Version 1)
Quarter: 2015Q2

REPORT INFORMATION
  Report Type: Spontaneous
  Country: US (occurrence: US)
  Receive Date: 20150520
  Receipt Date: 20150520
  Transmission Date: 20150821
  Serious: Yes (Hospitalization)
  Sender: FDA-Public Use
  Company Number: US-HOSPIRA-2858980

PATIENT
  Age: 62 Year
  Sex: Female

DRUGS (3)
  1. DEPO-MEDROL [Suspect]
     Active Substance: METHYLPREDNISOLONE ACETATE
     Indication: PRODUCT USED FOR UNKNOWN INDICATION
     Dosage: BILATERAL INJECTIONS INJECTED INTO THE SACROILIAC JOINT BURSA REGION
     Route: 050
     Dates: start: 20150318
  2. MARCAINE [Suspect]
     Active Substance: BUPIVACAINE HYDROCHLORIDE
     Indication: PRODUCT USED FOR UNKNOWN INDICATION
     Dosage: BILATERAL INJECTIONS INJECTED INTO THE SACROILIAC JOINT BURSA REGION
     Route: 050
     Dates: start: 20150318
  3. LIDOCAINE HYDROCHLORIDE. [Suspect]
     Active Substance: LIDOCAINE HYDROCHLORIDE
     Indication: PRODUCT USED FOR UNKNOWN INDICATION
     Dosage: BILATERAL INJECTIONS INJECTED INTO THE SACROILIAC JOINT BURSA REGION
     Route: 050
     Dates: start: 20150318

REACTIONS (8)
  - Pyrexia [Recovering/Resolving]
  - Injection site erythema [Recovering/Resolving]
  - Back pain [Recovering/Resolving]
  - Injection site abscess [Recovering/Resolving]
  - Injection site swelling [Recovering/Resolving]
  - Product quality issue [Recovering/Resolving]
  - Injection site bruising [Recovering/Resolving]
  - Pain [Recovering/Resolving]

NARRATIVE: CASE EVENT DATE: 20150320
